FAERS Safety Report 25307724 (Version 1)
Quarter: 2025Q2

REPORT INFORMATION
  Report Type: Spontaneous
  Country: TH (occurrence: TH)
  Receive Date: 20250513
  Receipt Date: 20250513
  Transmission Date: 20250717
  Serious: Yes (Hospitalization, Other)
  Sender: PFIZER
  Company Number: TH-PFIZER INC-PV202500055226

PATIENT
  Age: 28 Year
  Sex: Female
  Weight: 32.9 kg

DRUGS (24)
  1. VORICONAZOLE [Suspect]
     Active Substance: VORICONAZOLE
     Indication: Bronchopulmonary aspergillosis
     Dosage: DAY 8
     Route: 042
  2. VORICONAZOLE [Suspect]
     Active Substance: VORICONAZOLE
     Dosage: DAY 9
     Route: 042
  3. VORICONAZOLE [Suspect]
     Active Substance: VORICONAZOLE
     Dosage: DAY 10-13
     Route: 042
  4. VORICONAZOLE [Suspect]
     Active Substance: VORICONAZOLE
     Dosage: DAY 14
     Route: 042
  5. VORICONAZOLE [Suspect]
     Active Substance: VORICONAZOLE
     Dosage: DAY 15
     Route: 042
  6. VORICONAZOLE [Suspect]
     Active Substance: VORICONAZOLE
     Dosage: DAY 16
     Route: 042
  7. VORICONAZOLE [Suspect]
     Active Substance: VORICONAZOLE
     Dosage: DAY 17-19, (120 MG IV EVERY 8 HOURS) WAS ADMINISTERED ON DAY 16
     Route: 042
  8. VORICONAZOLE [Suspect]
     Active Substance: VORICONAZOLE
     Dosage: DAY 20
     Route: 042
  9. VORICONAZOLE [Suspect]
     Active Substance: VORICONAZOLE
     Dosage: DAY 21-47
     Route: 042
  10. VORICONAZOLE [Suspect]
     Active Substance: VORICONAZOLE
     Dosage: DAY 48
     Route: 042
  11. VORICONAZOLE [Suspect]
     Active Substance: VORICONAZOLE
     Dosage: DAY 49
     Route: 042
  12. VORICONAZOLE [Suspect]
     Active Substance: VORICONAZOLE
     Dosage: DAY 53
     Route: 042
  13. VORICONAZOLE [Suspect]
     Active Substance: VORICONAZOLE
     Dosage: DAY 54
     Route: 042
  14. VORICONAZOLE [Suspect]
     Active Substance: VORICONAZOLE
     Dosage: DAY 56
     Route: 042
  15. VORICONAZOLE [Suspect]
     Active Substance: VORICONAZOLE
     Dosage: DAY 57-61 (150 MG IV Q 6 HOURS)
     Route: 042
  16. VORICONAZOLE [Suspect]
     Active Substance: VORICONAZOLE
     Dosage: DAY 62
     Route: 042
  17. VORICONAZOLE [Suspect]
     Active Substance: VORICONAZOLE
     Dosage: DAY 71
     Route: 042
  18. VORICONAZOLE [Suspect]
     Active Substance: VORICONAZOLE
     Dosage: DAY 74
     Route: 042
  19. VORICONAZOLE [Suspect]
     Active Substance: VORICONAZOLE
     Indication: Bronchopulmonary aspergillosis
     Dosage: LOADING OF VRZ WAS ESTIMATED AS 6.07 MG/KG/DOSE TWICE DAILY
     Route: 048
  20. VORICONAZOLE [Suspect]
     Active Substance: VORICONAZOLE
     Dosage: 100 MG EVERY 12 HOURS
     Route: 048
  21. VORICONAZOLE [Suspect]
     Active Substance: VORICONAZOLE
     Dosage: 200 MG, DAILY
     Route: 048
  22. VORICONAZOLE [Suspect]
     Active Substance: VORICONAZOLE
     Dosage: 300 MG, DAILY
     Route: 048
  23. VORICONAZOLE [Suspect]
     Active Substance: VORICONAZOLE
     Dosage: 200 MG, DAILY
     Route: 048
  24. VORICONAZOLE [Suspect]
     Active Substance: VORICONAZOLE
     Dosage: 200 MG, DAILY
     Route: 048

REACTIONS (3)
  - Drug level below therapeutic [Unknown]
  - Hepatic enzyme increased [Unknown]
  - Off label use [Unknown]
